FAERS Safety Report 4641365-5 (Version None)
Quarter: 2005Q2

REPORT INFORMATION
  Report Type: 
  Country: None (occurrence: None)
  Receive Date: 20050421
  Receipt Date: 20050412
  Transmission Date: 20051028
  Serious: Yes (Hospitalization)
  Sender: FDA-Public Use
  Company Number: US-MERCK-0504USA01794

PATIENT
  Age: 75 Year
  Sex: Female

DRUGS (6)
  1. VIOXX [Suspect]
     Indication: KNEE ARTHROPLASTY
     Route: 048
     Dates: start: 19990101, end: 20040930
  2. ACCUPRIL [Concomitant]
     Route: 065
  3. PREVACID [Concomitant]
     Route: 065
  4. SYNTHROID [Concomitant]
     Route: 065
  5. PREMARIN [Concomitant]
     Route: 065
  6. LASIX [Concomitant]
     Route: 065

REACTIONS (4)
  - BLOOD PRESSURE INCREASED [None]
  - GASTRIC DISORDER [None]
  - JOINT SWELLING [None]
  - RASH [None]
